FAERS Safety Report 12656141 (Version 1)
Quarter: 2016Q3

REPORT INFORMATION
  Report Type: Spontaneous
  Country: US (occurrence: US)
  Receive Date: 20160816
  Receipt Date: 20160816
  Transmission Date: 20161109
  Serious: No
  Sender: FDA-Public Use
  Company Number: US-UNICHEM LABORATORIES LIMITED-UCM201604-000067

PATIENT
  Age: 72 Year
  Sex: Female
  Weight: 95.25 kg

DRUGS (12)
  1. LOSARTAN. [Concomitant]
     Active Substance: LOSARTAN
  2. FLECANIDE [Concomitant]
     Active Substance: FLECAINIDE
  3. ZOFRAN [Concomitant]
     Active Substance: ONDANSETRON HYDROCHLORIDE
  4. AMLODIPINE [Suspect]
     Active Substance: AMLODIPINE BESYLATE
  5. FENTANYL. [Concomitant]
     Active Substance: FENTANYL
  6. PREDNISONE. [Concomitant]
     Active Substance: PREDNISONE
  7. LIPITOR [Concomitant]
     Active Substance: ATORVASTATIN CALCIUM
  8. METHOTREXATE. [Concomitant]
     Active Substance: METHOTREXATE
  9. HYDRALAZINE [Concomitant]
     Active Substance: HYDRALAZINE HYDROCHLORIDE
  10. FIORINAL [Concomitant]
     Active Substance: ASPIRIN\BUTALBITAL\CAFFEINE
  11. METOPROLOL. [Concomitant]
     Active Substance: METOPROLOL
  12. DIIAUDID [Concomitant]

REACTIONS (5)
  - Oedema [Unknown]
  - Fear of falling [Unknown]
  - Fatigue [Unknown]
  - Stomatitis [Unknown]
  - Asthenia [Unknown]
